FAERS Safety Report 9076148 (Version 1)
Quarter: 2013Q1

REPORT INFORMATION
  Report Type: Report from Study
  Country: US (occurrence: US)
  Receive Date: 20130129
  Receipt Date: 20130129
  Transmission Date: 20140127
  Serious: No
  Sender: FDA-Public Use
  Company Number: US-ABBOTT-12P-163-0930027-00

PATIENT
  Age: 46 Year
  Sex: Female

DRUGS (4)
  1. HUMIRA 40 MG/0.8 ML PEN [Suspect]
     Indication: CROHN^S DISEASE
     Dosage: LOADING DOSE
     Route: 058
     Dates: start: 20120413
  2. HUMIRA 40 MG/0.8 ML PEN [Suspect]
     Dates: start: 201203, end: 20120511
  3. PROZAC [Concomitant]
     Indication: DEPRESSION
     Dosage: 20MG DAILY
  4. FENTANYL [Concomitant]
     Indication: PAIN

REACTIONS (11)
  - Lethargy [Not Recovered/Not Resolved]
  - Headache [Recovered/Resolved]
  - Injection site rash [Not Recovered/Not Resolved]
  - Rash [Not Recovered/Not Resolved]
  - Rash [Not Recovered/Not Resolved]
  - Rash generalised [Recovering/Resolving]
  - Rash pruritic [Recovering/Resolving]
  - Injection site rash [Recovering/Resolving]
  - Injection site pruritus [Recovering/Resolving]
  - Rash erythematous [Recovering/Resolving]
  - Injection site erythema [Recovering/Resolving]
